FAERS Safety Report 6785737-1 (Version None)
Quarter: 2010Q2

REPORT INFORMATION
  Report Type: 
  Country: None (occurrence: None)
  Receive Date: 20100621
  Receipt Date: 20100621
  Transmission Date: 20101027
  Serious: Yes (Other)
  Sender: FDA-Public Use
  Company Number: None

PATIENT
  Age: 48 Day
  Sex: Female
  Weight: 87.9978 kg

DRUGS (1)
  1. ACNEFREE, ACNE+BLACKHEAD TERMINAT SALCYLIC ACID 2% UNIVERSITY MEDICAL [Suspect]
     Indication: ACNE
     Dosage: SMALL AMOUNT ONCE AT NIGHT
     Dates: start: 20100610, end: 20100619

REACTIONS (2)
  - FACE INJURY [None]
  - RASH [None]
